FAERS Safety Report 6732917-7 (Version None)
Quarter: 2010Q2

REPORT INFORMATION
  Report Type: 
  Country: None (occurrence: None)
  Receive Date: 20100517
  Receipt Date: 20100429
  Transmission Date: 20101027
  Serious: No
  Sender: FDA-Public Use
  Company Number: APP201000304

PATIENT
  Sex: Female

DRUGS (1)
  1. ASTRAMORPH PF [Suspect]
     Indication: CAESAREAN SECTION

REACTIONS (3)
  - BODY TEMPERATURE DECREASED [None]
  - DRUG EXPOSURE DURING PREGNANCY [None]
  - HYPERHIDROSIS [None]
